FAERS Safety Report 7866497-X (Version None)
Quarter: 2011Q4

REPORT INFORMATION
  Report Type: 
  Country: None (occurrence: None)
  Receive Date: 20111028
  Receipt Date: 20110902
  Transmission Date: 20120403
  Serious: No
  Sender: FDA-Public Use
  Company Number: US-PFIZER INC-2011259190

PATIENT

DRUGS (1)
  1. PROPRANOLOL HCL + HYDROCHLOROTHIAZIDE [Suspect]

REACTIONS (1)
  - ASTHMA [None]
